FAERS Safety Report 6720418-1 (Version None)
Quarter: 2010Q2

REPORT INFORMATION
  Report Type: 
  Country: None (occurrence: None)
  Receive Date: 20100511
  Receipt Date: 20100430
  Transmission Date: 20101027
  Serious: Yes (Hospitalization, Other)
  Sender: FDA-Public Use
  Company Number: US-CELGENEUS-163-21880-10050133

PATIENT
  Sex: Male
  Weight: 92 kg

DRUGS (23)
  1. REVLIMID [Suspect]
     Indication: MULTIPLE MYELOMA
     Route: 048
     Dates: start: 20090721
  2. DEXAMETHASONE [Suspect]
     Indication: MULTIPLE MYELOMA
     Route: 048
     Dates: start: 20100209
  3. DEXAMETHASONE [Suspect]
     Route: 065
     Dates: start: 20090721
  4. VELCADE [Suspect]
     Indication: MULTIPLE MYELOMA
     Route: 065
     Dates: start: 20090721
  5. DOXIL [Suspect]
     Indication: MULTIPLE MYELOMA
     Route: 065
     Dates: start: 20090721
  6. COUMADIN [Concomitant]
     Dosage: 4MG, 2MG
     Route: 065
     Dates: start: 20100101
  7. LEVOFLOXACIN [Concomitant]
     Indication: DRUG USE FOR UNKNOWN INDICATION
     Route: 048
  8. GUAIFENESIN-CODEINE [Concomitant]
     Indication: COUGH
     Route: 048
  9. IBUPROFEN [Concomitant]
     Indication: DRUG USE FOR UNKNOWN INDICATION
     Route: 048
  10. POLYETHYLENE GLYCOL [Concomitant]
     Indication: DRUG USE FOR UNKNOWN INDICATION
     Route: 048
  11. POTASSIUM + SODIUM PHOSPHATES [Concomitant]
     Indication: DRUG USE FOR UNKNOWN INDICATION
     Route: 048
  12. MORPHINE [Concomitant]
     Indication: DRUG USE FOR UNKNOWN INDICATION
     Route: 048
  13. OXYCODONE [Concomitant]
     Indication: PAIN
     Route: 048
  14. GABAPENTIN [Concomitant]
     Indication: DRUG USE FOR UNKNOWN INDICATION
     Route: 048
  15. ACYCLOVIR [Concomitant]
     Indication: DRUG USE FOR UNKNOWN INDICATION
     Route: 048
  16. LORAZEPAM [Concomitant]
     Indication: ANXIETY
     Route: 048
  17. LORAZEPAM [Concomitant]
     Indication: NAUSEA
  18. LORAZEPAM [Concomitant]
     Indication: VOMITING
  19. ONDANSETRON [Concomitant]
     Indication: NAUSEA
     Route: 048
  20. ONDANSETRON [Concomitant]
     Indication: VOMITING
  21. SODIUM CHLORIDE [Concomitant]
     Indication: DRUG USE FOR UNKNOWN INDICATION
     Route: 051
  22. TRIMETHOPRIM + SULFAMETHOXAZOLE [Concomitant]
     Indication: DRUG USE FOR UNKNOWN INDICATION
     Dosage: 160-800 MG/ 1 TAB
     Route: 048
  23. ENOXAPARIN SODIUM [Concomitant]
     Indication: DRUG USE FOR UNKNOWN INDICATION
     Route: 058

REACTIONS (3)
  - DEEP VEIN THROMBOSIS [None]
  - HAEMOPTYSIS [None]
  - PNEUMONIA [None]
